FAERS Safety Report 8230276-4 (Version None)
Quarter: 2012Q1

REPORT INFORMATION
  Report Type: 
  Country: None (occurrence: None)
  Receive Date: 20120323
  Receipt Date: 20120312
  Transmission Date: 20120608
  Serious: Yes (Other)
  Sender: FDA-Public Use
  Company Number: BR-JNJFOC-20120307417

PATIENT
  Age: 13 Year
  Sex: Female

DRUGS (4)
  1. HYDROCORTISONE [Concomitant]
     Indication: PREMEDICATION
     Route: 065
  2. REMICADE [Suspect]
     Route: 042
  3. REMICADE [Suspect]
     Route: 042
     Dates: start: 20111219
  4. REMICADE [Suspect]
     Indication: CROHN'S DISEASE
     Route: 042
     Dates: start: 20120127

REACTIONS (8)
  - INFUSION RELATED REACTION [None]
  - TACHYCARDIA [None]
  - DIARRHOEA [None]
  - ABDOMINAL PAIN [None]
  - URTICARIA [None]
  - TACHYPNOEA [None]
  - NAUSEA [None]
  - PALLOR [None]
